FAERS Safety Report 6803807-6 (Version None)
Quarter: 2010Q2

REPORT INFORMATION
  Report Type: 
  Country: None (occurrence: None)
  Receive Date: 20100628
  Receipt Date: 20100628
  Transmission Date: 20101027
  Serious: Yes (Hospitalization)
  Sender: FDA-Public Use
  Company Number: None

PATIENT
  Sex: Female

DRUGS (1)
  1. DIAZEPAM [Suspect]
     Indication: NUCLEAR MAGNETIC RESONANCE IMAGING
     Dosage: 5 MG ONCE PO ; ONE DOSE
     Route: 048

REACTIONS (4)
  - CONVERSION DISORDER [None]
  - CONVULSION [None]
  - NAUSEA [None]
  - VOMITING [None]
